FAERS Safety Report 4457844-X (Version None)
Quarter: 2004Q3

REPORT INFORMATION
  Report Type: 
  Country: None (occurrence: None)
  Receive Date: 20040924
  Receipt Date: 20040916
  Transmission Date: 20050211
  Serious: Yes (Other)
  Sender: FDA-Public Use
  Company Number: US-MERCK-0409USA01629

PATIENT
  Age: 77 Year
  Sex: Male

DRUGS (1)
  1. ZOCOR [Suspect]
     Indication: HYPERLIPIDAEMIA
     Route: 048
     Dates: start: 20000101, end: 20040101

REACTIONS (3)
  - AORTIC ANEURYSM [None]
  - MUSCLE CRAMP [None]
  - RENAL FAILURE [None]
